FAERS Safety Report 18107540 (Version 3)
Quarter: 2021Q2

REPORT INFORMATION
  Report Type: Report from Study
  Country: FR (occurrence: FR)
  Receive Date: 20200804
  Receipt Date: 20210519
  Transmission Date: 20210717
  Serious: Yes (Other)
  Sender: FDA-Public Use
  Company Number: FR-ROCHE-2651284

PATIENT
  Age: 60 Year
  Sex: Male

DRUGS (6)
  1. TOCILIZUMAB. [Suspect]
     Active Substance: TOCILIZUMAB
     Dosage: 20 MG/ML
     Route: 042
     Dates: start: 20200408
  2. CEFOTAXIME [Concomitant]
     Active Substance: CEFOTAXIME SODIUM
  3. TOCILIZUMAB. [Suspect]
     Active Substance: TOCILIZUMAB
     Indication: COVID-19
     Dosage: 20 MG/ML
     Route: 042
     Dates: start: 20200405, end: 20200408
  4. CALCIDOSE (FRANCE) [Concomitant]
     Active Substance: CALCIUM CARBONATE
  5. LOVENOX [Concomitant]
     Active Substance: ENOXAPARIN SODIUM
  6. LASILIX [Concomitant]
     Active Substance: FUROSEMIDE

REACTIONS (4)
  - Pneumonia escherichia [Recovered/Resolved]
  - Staphylococcal infection [Recovered/Resolved]
  - Pneumonia bacterial [Recovered/Resolved]
  - Enterobacter pneumonia [Recovered/Resolved]

NARRATIVE: CASE EVENT DATE: 20200414
